FAERS Safety Report 7243471-8 (Version None)
Quarter: 2011Q1

REPORT INFORMATION
  Report Type: 
  Country: None (occurrence: None)
  Receive Date: 20110119
  Receipt Date: 20110119
  Transmission Date: 20110831
  Serious: No
  Sender: FDA-Public Use
  Company Number: None

PATIENT
  Age: 46 Year
  Sex: Female
  Weight: 81.6475 kg

DRUGS (1)
  1. LEVAQUIN [Suspect]
     Indication: UPPER RESPIRATORY TRACT INFECTION
     Dosage: 2 DAILY PO
     Route: 048
     Dates: start: 20100726, end: 20100803

REACTIONS (6)
  - TENDONITIS [None]
  - PAIN [None]
  - BLOOD TRIGLYCERIDES INCREASED [None]
  - JOINT SWELLING [None]
  - CONTUSION [None]
  - SENSORY DISTURBANCE [None]
